FAERS Safety Report 6248619-X (Version None)
Quarter: 2009Q2

REPORT INFORMATION
  Report Type: 
  Country: None (occurrence: None)
  Receive Date: 20090624
  Receipt Date: 20090624
  Transmission Date: 20091009
  Serious: Yes (Hospitalization)
  Sender: FDA-Public Use
  Company Number: None

PATIENT
  Age: 24 Year
  Sex: Female
  Weight: 98.1 kg

DRUGS (3)
  1. BACTRIM [Suspect]
     Indication: CELLULITIS
     Dosage: 1 DS PO BID
     Route: 048
     Dates: start: 20090411, end: 20090421
  2. PROGESTERONE [Concomitant]
  3. LEVOTHYROXINE SODIUM [Concomitant]

REACTIONS (1)
  - RASH [None]
